FAERS Safety Report 20558683 (Version 1)
Quarter: 2022Q1

REPORT INFORMATION
  Report Type: Spontaneous
  Country: US (occurrence: US)
  Receive Date: 20220307
  Receipt Date: 20220307
  Transmission Date: 20220423
  Serious: No
  Sender: FDA-Public Use
  Company Number: US-JNJFOC-20220259743

PATIENT
  Age: 5 Year
  Sex: Male

DRUGS (1)
  1. CHILDRENS ZYRTEC ALLERGY [Suspect]
     Active Substance: CETIRIZINE HYDROCHLORIDE
     Indication: Accidental exposure to product by child
     Dosage: 6 TABLETS
     Route: 048
     Dates: start: 20220224

REACTIONS (2)
  - Accidental overdose [Unknown]
  - Accidental exposure to product by child [Unknown]

NARRATIVE: CASE EVENT DATE: 20220224
